FAERS Safety Report 8540942-9 (Version None)
Quarter: 2012Q3

REPORT INFORMATION
  Report Type: 
  Country: None (occurrence: None)
  Receive Date: 20120726
  Receipt Date: 20110811
  Transmission Date: 20120928
  Serious: No
  Sender: FDA-Public Use
  Company Number: US-ASTRAZENECA-2011SE48431

PATIENT
  Age: 67 Year
  Sex: Female

DRUGS (11)
  1. SEROQUEL [Suspect]
     Indication: BIPOLAR DISORDER
     Route: 048
  2. K-TAB [Concomitant]
  3. ALENDRONATE SODIUM [Concomitant]
  4. CEPHALEXIN [Concomitant]
  5. VALPROIC ACID [Concomitant]
  6. CLONAZEPAM [Concomitant]
  7. ACETAMINOPHEN [Concomitant]
  8. LATANOPROST [Concomitant]
  9. MIRTAZAPINE [Concomitant]
  10. LUMIGAN [Concomitant]
  11. ZOLPIDEM [Concomitant]

REACTIONS (6)
  - RASH [None]
  - HYPERSENSITIVITY [None]
  - ILL-DEFINED DISORDER [None]
  - CONSTIPATION [None]
  - GLAUCOMA [None]
  - RIB FRACTURE [None]
